FAERS Safety Report 22611482 (Version 2)
Quarter: 2023Q2

REPORT INFORMATION
  Report Type: Spontaneous
  Country: BR (occurrence: BR)
  Receive Date: 20230616
  Receipt Date: 20230620
  Transmission Date: 20230721
  Serious: Yes (Other)
  Sender: FDA-Public Use
  Company Number: BR-BoehringerIngelheim-2023-BI-243251

PATIENT
  Age: 42 Year
  Sex: Female
  Weight: 67 kg

DRUGS (9)
  1. ATROVENT [Suspect]
     Active Substance: IPRATROPIUM BROMIDE
     Indication: Chronic obstructive pulmonary disease
     Dosage: USED IT SPORADICALLY, ABOUT 10 DROPS EVERY NEBULIZATION, STIPULATED ABOUT 3 NEBULIZATION PER DAY
     Route: 055
  2. ATROVENT [Suspect]
     Active Substance: IPRATROPIUM BROMIDE
     Dosage: USED IT SPORADICALLY, ABOUT 10 DROPS EVERY NEBULIZATION, STIPULATED ABOUT 3 NEBULIZATION PER DAY
     Route: 055
     Dates: start: 202306
  3. SPIRIVA RESPIMAT [Suspect]
     Active Substance: TIOTROPIUM BROMIDE
     Indication: Chronic obstructive pulmonary disease
     Dosage: 2 PUFFS AT NIGHT
     Route: 055
     Dates: start: 2018, end: 202302
  4. BEROTEC [Suspect]
     Active Substance: FENOTEROL HYDROBROMIDE
     Indication: Chronic obstructive pulmonary disease
     Dosage: AEROSOL; USING SPORADICALLY AND AS A RESCUE; 1 OR 2 TIMES DAILY WHEN NEEDED
     Route: 055
  5. ALBUTEROL [Concomitant]
     Active Substance: ALBUTEROL
     Indication: Chronic obstructive pulmonary disease
     Dosage: AEROSOL
     Route: 055
     Dates: start: 2013
  6. Alenia [Concomitant]
     Indication: Chronic obstructive pulmonary disease
     Dosage: ABOUT 400MG
     Route: 055
     Dates: start: 2017, end: 2018
  7. Alenia [Concomitant]
     Dosage: IN THE MORNING
     Route: 055
     Dates: start: 2018, end: 202302
  8. SERETIDE [Concomitant]
     Active Substance: FLUTICASONE PROPIONATE\SALMETEROL XINAFOATE
     Indication: Product used for unknown indication
     Dates: start: 2018, end: 2018
  9. UMECLIDINIUM BROMIDE\VILANTEROL TRIFENATATE [Concomitant]
     Active Substance: UMECLIDINIUM BROMIDE\VILANTEROL TRIFENATATE
     Indication: Chronic obstructive pulmonary disease
     Dosage: 62.5/25MCG
     Route: 055
     Dates: start: 202302

REACTIONS (10)
  - Brain stem stroke [Recovered/Resolved]
  - Anxiety [Unknown]
  - COVID-19 [Unknown]
  - COVID-19 [Unknown]
  - Influenza [Unknown]
  - Dyspnoea [Unknown]
  - Fatigue [Unknown]
  - Renal failure [Unknown]
  - Product quality issue [Unknown]
  - Muscle spasms [Unknown]

NARRATIVE: CASE EVENT DATE: 20050101
